FAERS Safety Report 8339139-7 (Version None)
Quarter: 2012Q2

REPORT INFORMATION
  Report Type: 
  Country: None (occurrence: None)
  Receive Date: 20120507
  Receipt Date: 20120425
  Transmission Date: 20120825
  Serious: No
  Sender: FDA-Public Use
  Company Number: US-PFIZER INC-2012104564

PATIENT

DRUGS (11)
  1. BENZYLPENICILLIN POTASSIUM [Suspect]
     Dosage: UNK
  2. NAPROXEN (ALEVE) [Suspect]
     Dosage: UNK
  3. NALBUPHINE HYDROCHLORIDE [Suspect]
     Dosage: UNK
  4. CYMBALTA [Suspect]
     Dosage: UNK
  5. ERYTHROMYCIN [Suspect]
     Dosage: UNK
  6. DEMEROL [Suspect]
     Dosage: UNK
  7. CODEINE [Suspect]
     Dosage: UNK
  8. REGLAN [Suspect]
     Dosage: UNK
  9. TIZANIDINE [Suspect]
     Dosage: UNK
  10. NAPROSYN [Suspect]
     Dosage: UNK
  11. OXYCONTIN [Suspect]
     Dosage: UNK

REACTIONS (1)
  - DRUG HYPERSENSITIVITY [None]
